FAERS Safety Report 8432684-5 (Version None)
Quarter: 2012Q2

REPORT INFORMATION
  Report Type: 
  Country: None (occurrence: None)
  Receive Date: 20120607
  Receipt Date: 20120524
  Transmission Date: 20120825
  Serious: Yes (Death, Hospitalization)
  Sender: FDA-Public Use
  Company Number: 2012CP000062

PATIENT
  Age: 63 Year
  Sex: Female

DRUGS (1)
  1. ACETAMINOPHEN [Suspect]
     Dosage: ;IV
     Route: 042
     Dates: start: 20110901

REACTIONS (12)
  - COMA [None]
  - SEPSIS [None]
  - AUTOIMMUNE HEPATITIS [None]
  - HEPATIC FAILURE [None]
  - RENAL FAILURE [None]
  - HEPATIC ENZYME INCREASED [None]
  - INFECTION [None]
  - LIVER TRANSPLANT [None]
  - DRUG-INDUCED LIVER INJURY [None]
  - COAGULOPATHY [None]
  - CONVULSION [None]
  - CEREBROVASCULAR ACCIDENT [None]
